FAERS Safety Report 6464102-0 (Version None)
Quarter: 2009Q4

REPORT INFORMATION
  Report Type: 
  Country: None (occurrence: None)
  Receive Date: 20091201
  Receipt Date: 20091124
  Transmission Date: 20100525
  Serious: Yes (Hospitalization)
  Sender: FDA-Public Use
  Company Number: JP-SANOFI-AVENTIS-2009SA003971

PATIENT
  Age: 51 Year
  Sex: Male

DRUGS (2)
  1. AMARYL [Suspect]
     Indication: TYPE 2 DIABETES MELLITUS
     Dosage: CCT 1MG/MORNING, 1 MG/EVENING
     Route: 048
     Dates: start: 20080904
  2. SYR-322 [Concomitant]
     Dosage: CCT 1 TABLET
     Dates: start: 20081128, end: 20091001

REACTIONS (1)
  - ANGINA PECTORIS [None]
